FAERS Safety Report 20655814 (Version 1)
Quarter: 2022Q1

REPORT INFORMATION
  Report Type: Spontaneous
  Country: SG (occurrence: SG)
  Receive Date: 20220330
  Receipt Date: 20220330
  Transmission Date: 20220423
  Serious: Yes (Other)
  Sender: FDA-Public Use
  Company Number: SG-SCALL-2022-SG-000008

PATIENT
  Sex: 0

DRUGS (1)
  1. AVODART [Suspect]
     Active Substance: DUTASTERIDE
     Indication: Alopecia
     Dosage: 0.5 MG, QD
     Route: 048

REACTIONS (2)
  - Foreign body in throat [Unknown]
  - Product use in unapproved indication [Unknown]
